FAERS Safety Report 25016744 (Version 1)
Quarter: 2025Q1

REPORT INFORMATION
  Report Type: Spontaneous
  Country: FR (occurrence: FR)
  Receive Date: 20250227
  Receipt Date: 20250227
  Transmission Date: 20250408
  Serious: Yes (Congenital Anomaly, Other)
  Sender: CHEPLAPHARM
  Company Number: None

PATIENT
  Age: 0 Year
  Sex: Male

DRUGS (4)
  1. VALGANCICLOVIR [Suspect]
     Active Substance: VALGANCICLOVIR
     Dosage: 450 THREE TIMES DAILY?DAILY DOSE: 1350 MILLIGRAM
     Route: 064
     Dates: start: 20231222, end: 20240814
  2. VALACYCLOVIR HYDROCHLORIDE [Suspect]
     Active Substance: VALACYCLOVIR HYDROCHLORIDE
     Dosage: DAILY DOSE: 8 GRAM
     Route: 064
     Dates: start: 20231222, end: 20240215
  3. Gynefam [Concomitant]
  4. FERROUS SUCCINATE\SUCCINIC ACID [Concomitant]
     Active Substance: FERROUS SUCCINATE\SUCCINIC ACID

REACTIONS (2)
  - Deafness congenital [Not Recovered/Not Resolved]
  - Foetal exposure during pregnancy [Recovered/Resolved]

NARRATIVE: CASE EVENT DATE: 20240215
